FAERS Safety Report 16577868 (Version 2)
Quarter: 2019Q3

REPORT INFORMATION
  Report Type: Spontaneous
  Country: CN (occurrence: CN)
  Receive Date: 20190716
  Receipt Date: 20190719
  Transmission Date: 20191004
  Serious: Yes (Hospitalization)
  Sender: FDA-Public Use
  Company Number: CN-ELI_LILLY_AND_COMPANY-CN201907004138

PATIENT
  Age: 72 Year
  Sex: Female
  Weight: 65 kg

DRUGS (3)
  1. HUMULIN 70/30 [Suspect]
     Active Substance: INSULIN HUMAN
     Dosage: 23 U, EACH EVENING
     Route: 058
     Dates: start: 2013
  2. TRAJENTA [Concomitant]
     Active Substance: LINAGLIPTIN
     Indication: DIABETES MELLITUS
     Dosage: 1 DOSAGE FORM, DAILY
     Route: 048
     Dates: start: 201903
  3. HUMULIN 70/30 [Suspect]
     Active Substance: INSULIN HUMAN
     Indication: DIABETES MELLITUS
     Dosage: 27 U, EACH MORNING
     Route: 058
     Dates: start: 2013

REACTIONS (6)
  - Protein urine present [Unknown]
  - Cerebral disorder [Unknown]
  - Blood glucose increased [Unknown]
  - Nephropathy [Unknown]
  - Visual impairment [Unknown]
  - Product dose omission [Unknown]
